FAERS Safety Report 6583794-9 (Version None)
Quarter: 2010Q1

REPORT INFORMATION
  Report Type: 
  Country: None (occurrence: None)
  Receive Date: 20100216
  Receipt Date: 20091120
  Transmission Date: 20100710
  Serious: No
  Sender: FDA-Public Use
  Company Number: US-ABBOTT-09P-163-0609932-00

PATIENT
  Sex: Female
  Weight: 72.64 kg

DRUGS (12)
  1. SIMCOR [Suspect]
     Indication: BLOOD CHOLESTEROL INCREASED
     Dosage: 1000/20 X 2 AT BEDTIME
     Dates: start: 20080101, end: 20091113
  2. SIMCOR [Suspect]
     Dosage: 1000/20 X 2 AT BEDTIME
  3. ASPIRIN [Concomitant]
     Indication: DRUG USE FOR UNKNOWN INDICATION
  4. GARLIQUE OTC [Concomitant]
     Indication: DRUG USE FOR UNKNOWN INDICATION
  5. ARTHROTEC [Concomitant]
     Indication: DRUG USE FOR UNKNOWN INDICATION
  6. NADOLOL [Concomitant]
     Indication: DRUG USE FOR UNKNOWN INDICATION
  7. TRIAMTERENE AND HYDROCHLOROTHIAZIDE [Concomitant]
     Indication: DRUG USE FOR UNKNOWN INDICATION
  8. CALCIUM [Concomitant]
     Indication: DRUG USE FOR UNKNOWN INDICATION
  9. VIT D [Concomitant]
     Indication: DRUG USE FOR UNKNOWN INDICATION
  10. MELOXICAM [Concomitant]
     Indication: DRUG USE FOR UNKNOWN INDICATION
  11. GABAPENTIN [Concomitant]
     Indication: DRUG USE FOR UNKNOWN INDICATION
  12. LOVAZA [Concomitant]
     Indication: DRUG USE FOR UNKNOWN INDICATION

REACTIONS (2)
  - FLUSHING [None]
  - ULCER [None]
